FAERS Safety Report 5229525-6 (Version None)
Quarter: 2007Q1

REPORT INFORMATION
  Report Type: 
  Country: None (occurrence: None)
  Receive Date: 20070201
  Receipt Date: 20070118
  Transmission Date: 20070707
  Serious: Yes (Death)
  Sender: FDA-Public Use
  Company Number: RENA-12039

PATIENT
  Age: 80 Year
  Sex: Female

DRUGS (1)
  1. RENAGEL [Suspect]
     Indication: HYPERPHOSPHATAEMIA
     Dates: end: 20061201

REACTIONS (10)
  - CEREBROVASCULAR ACCIDENT [None]
  - COLON CANCER [None]
  - DYSPHAGIA [None]
  - METASTATIC NEOPLASM [None]
  - ORAL ADMINISTRATION COMPLICATION [None]
  - ORAL INTAKE REDUCED [None]
  - PAIN [None]
  - PARKINSON'S DISEASE [None]
  - REFUSAL OF TREATMENT BY PATIENT [None]
  - RENAL FAILURE [None]
